FAERS Safety Report 4440852-2 (Version None)
Quarter: 2004Q3

REPORT INFORMATION
  Report Type: 
  Country: None (occurrence: None)
  Receive Date: 20040903
  Receipt Date: 20040705
  Transmission Date: 20050211
  Serious: Yes (Other)
  Sender: FDA-Public Use
  Company Number: DE-GLAXOSMITHKLINE-D0044121A

PATIENT
  Age: 38 Year
  Sex: Male

DRUGS (5)
  1. ALBUTEROL [Suspect]
     Dosage: 1PUFF EIGHT TIMES PER DAY
     Route: 055
     Dates: start: 19840101
  2. VENTOLAIR [Concomitant]
     Route: 065
  3. ZYRTEC [Concomitant]
     Route: 065
  4. LORANO [Concomitant]
     Route: 065
  5. PHENYTOIN [Concomitant]

REACTIONS (2)
  - MACULAR DEGENERATION [None]
  - VISUAL ACUITY REDUCED [None]
